FAERS Safety Report 5947743-6 (Version None)
Quarter: 2008Q4

REPORT INFORMATION
  Report Type: 
  Country: None (occurrence: None)
  Receive Date: 20081107
  Receipt Date: 20081030
  Transmission Date: 20090506
  Serious: Yes (Other)
  Sender: FDA-Public Use
  Company Number: 2008SP022303

PATIENT

DRUGS (1)
  1. DESLORATADINE [Suspect]
     Indication: URTICARIA
     Dosage: QD;
     Dates: start: 20070801, end: 20081001

REACTIONS (2)
  - BLOOD BILIRUBIN INCREASED [None]
  - RED BLOOD CELL COUNT INCREASED [None]
